FAERS Safety Report 4834086-7 (Version None)
Quarter: 2005Q4

REPORT INFORMATION
  Report Type: 
  Country: None (occurrence: None)
  Receive Date: 20051122
  Receipt Date: 20051108
  Transmission Date: 20060501
  Serious: Yes (Hospitalization)
  Sender: FDA-Public Use
  Company Number: JP-NOVOPROD-248464

PATIENT
  Age: 72 Year
  Sex: Female

DRUGS (8)
  1. NOVORAPID 30 MIX CHU FLEXPEN [Suspect]
     Indication: INSULIN-REQUIRING TYPE II DIABETES MELLITUS
     Dosage: 24 IU, QD
     Dates: start: 20040615, end: 20050510
  2. INNOLET 30R CHU [Suspect]
     Indication: INSULIN-REQUIRING TYPE II DIABETES MELLITUS
     Dosage: 26 IU, QD
     Dates: start: 20050511, end: 20050802
  3. AMARYL [Concomitant]
     Dosage: 1 MG, UNK
     Route: 048
     Dates: start: 20041109, end: 20050608
  4. ASPIRIN [Concomitant]
     Dosage: 100 MG, UNK
     Dates: start: 20040604
  5. LOCHOL [Concomitant]
     Dosage: 30 MG, UNK
     Route: 048
     Dates: start: 20040817
  6. NU-LOTAN [Concomitant]
     Dosage: 50 MG, UNK
     Route: 048
     Dates: start: 20040914
  7. MELBIN [Concomitant]
     Dosage: 250 MG, UNK
     Route: 048
     Dates: start: 20040603, end: 20050628
  8. OPALMON [Concomitant]
     Dosage: 30 MICROGRAM
     Dates: start: 20040302, end: 20050802

REACTIONS (2)
  - ANTI-INSULIN ANTIBODY INCREASED [None]
  - DIABETES MELLITUS INADEQUATE CONTROL [None]
